FAERS Safety Report 6678692-6 (Version None)
Quarter: 2010Q2

REPORT INFORMATION
  Report Type: 
  Country: None (occurrence: None)
  Receive Date: 20100412
  Receipt Date: 20100412
  Transmission Date: 20101027
  Serious: No
  Sender: FDA-Public Use
  Company Number: None

PATIENT
  Age: 81 Year
  Sex: Male
  Weight: 60 kg

DRUGS (12)
  1. INSULIN GLARGINE [Suspect]
     Indication: TYPE 2 DIABETES MELLITUS
     Dosage: 5 UNITS SQ BEDTIME
     Route: 058
     Dates: start: 20091222, end: 20091230
  2. ACYCLOVIR [Concomitant]
  3. COLISTIMETHATE SODIUM [Concomitant]
  4. ENALAPRIL MALEATE [Concomitant]
  5. FILGRASTIM [Concomitant]
  6. ALLOPURINOL [Concomitant]
  7. BACITRACIN [Concomitant]
  8. DIATRIZOATE [Concomitant]
  9. MAGNESIUM SULFATE [Concomitant]
  10. METOPROLOL TARTRATE [Concomitant]
  11. M.V.I. [Concomitant]
  12. NYSTATIN [Concomitant]

REACTIONS (1)
  - BLOOD GLUCOSE DECREASED [None]
